FAERS Safety Report 10253136 (Version 1)
Quarter: 2014Q2

REPORT INFORMATION
  Report Type: Spontaneous
  Country: US (occurrence: US)
  Receive Date: 20140623
  Receipt Date: 20140623
  Transmission Date: 20141212
  Serious: No
  Sender: FDA-Public Use
  Company Number: US-ZOGENIX, INC.-2011ZX000416

PATIENT
  Sex: Female
  Weight: 78.09 kg

DRUGS (7)
  1. SUMAVEL DOSEPRO [Suspect]
     Indication: MIGRAINE
  2. TREXIMET [Concomitant]
     Indication: MIGRAINE
     Route: 048
  3. ATENOLOL [Concomitant]
     Indication: BLOOD PRESSURE
     Route: 048
  4. LEXAPRO [Concomitant]
     Indication: DEPRESSION
     Route: 048
  5. LIPITOR [Concomitant]
     Indication: BLOOD CHOLESTEROL
  6. TOPAMAX [Concomitant]
     Indication: MIGRAINE
     Route: 048
  7. PRILOSEC                           /00661201/ [Concomitant]
     Indication: PRODUCT USED FOR UNKNOWN INDICATION

REACTIONS (3)
  - Injection site pain [Recovered/Resolved]
  - Accidental exposure to product [Recovered/Resolved]
  - Device malfunction [Recovered/Resolved]
